FAERS Safety Report 4597214-7 (Version None)
Quarter: 2005Q1

REPORT INFORMATION
  Report Type: 
  Country: None (occurrence: None)
  Receive Date: 20050301
  Receipt Date: 20050224
  Transmission Date: 20050727
  Serious: Yes (Hospitalization)
  Sender: FDA-Public Use
  Company Number: 2004GB00920

PATIENT
  Age: 39 Year
  Sex: Male

DRUGS (7)
  1. GEFITINIB [Suspect]
     Indication: COLORECTAL CANCER
     Dosage: 250 MG DAILY PO
     Route: 048
     Dates: start: 20040130
  2. FLUOROURACIL [Suspect]
     Indication: COLORECTAL CANCER
     Dosage: 628 MG Q14D IV
     Route: 042
     Dates: start: 20040213
  3. LEUCOVORIN [Suspect]
     Indication: COLORECTAL CANCER
     Dosage: 350 MG Q14D IV
     Route: 042
     Dates: start: 20040213
  4. ORAMORPH SR [Concomitant]
  5. MORPHINE SULFATE [Concomitant]
  6. IBUPROFEN [Concomitant]
  7. DIAMORPHINE [Concomitant]

REACTIONS (5)
  - DEHYDRATION [None]
  - HYPONATRAEMIA [None]
  - INTESTINAL OBSTRUCTION [None]
  - LETHARGY [None]
  - ORAL CANDIDIASIS [None]
